FAERS Safety Report 23434056 (Version 1)
Quarter: 2024Q1

REPORT INFORMATION
  Report Type: Spontaneous
  Country: US (occurrence: US)
  Receive Date: 20240123
  Receipt Date: 20240123
  Transmission Date: 20240409
  Serious: Yes (Other)
  Sender: FDA-Public Use
  Company Number: US-PFIZER INC-202400018415

PATIENT
  Age: 69 Year
  Sex: Female
  Weight: 71.67 kg

DRUGS (1)
  1. PAXLOVID [Suspect]
     Active Substance: NIRMATRELVIR\RITONAVIR
     Indication: COVID-19 treatment
     Dosage: [NIRMATRELVIR 150 MG]/[RITONAVIR 100 MG]; 2X/DAY
     Dates: start: 20240115

REACTIONS (9)
  - Loss of consciousness [Unknown]
  - Hypersomnia [Not Recovered/Not Resolved]
  - Dysgeusia [Unknown]
  - Dizziness [Unknown]
  - Nausea [Not Recovered/Not Resolved]
  - Burning sensation [Not Recovered/Not Resolved]
  - Headache [Not Recovered/Not Resolved]
  - Rhinorrhoea [Not Recovered/Not Resolved]
  - Sinusitis [Not Recovered/Not Resolved]

NARRATIVE: CASE EVENT DATE: 20240101
